FAERS Safety Report 9857081 (Version 2)
Quarter: 2014Q1

REPORT INFORMATION
  Report Type: Spontaneous
  Country: DE (occurrence: DE)
  Receive Date: 20140130
  Receipt Date: 20140227
  Transmission Date: 20141002
  Serious: Yes (Other)
  Sender: FDA-Public Use
  Company Number: DE-GILEAD-2014-0093090

PATIENT
  Age: 80 Year
  Sex: Female

DRUGS (2)
  1. RANOLAZINE [Suspect]
     Indication: ANGINA PECTORIS
     Dosage: 500 MG, BID
     Route: 048
  2. RANOLAZINE [Suspect]
     Dosage: 375 MG, BID
     Route: 048

REACTIONS (1)
  - Presbyacusis [Not Recovered/Not Resolved]
